FAERS Safety Report 7668748-3 (Version None)
Quarter: 2011Q3

REPORT INFORMATION
  Report Type: 
  Country: None (occurrence: None)
  Receive Date: 20110808
  Receipt Date: 20110802
  Transmission Date: 20111222
  Serious: Yes (Other)
  Sender: FDA-Public Use
  Company Number: NZ-AMGEN-KDC392484

PATIENT
  Age: 65 Year
  Sex: Male

DRUGS (6)
  1. VITAMIN D [Concomitant]
     Dosage: 300 IU, QD
     Route: 048
     Dates: start: 20070702
  2. BETAMETHASONE VALERATE [Concomitant]
     Dosage: UNK UNK, BID
     Route: 062
     Dates: start: 20080220
  3. LACTULOSE [Concomitant]
     Dosage: 10 ML, PRN
     Route: 048
     Dates: start: 20090514, end: 20090515
  4. DENOSUMAB [Suspect]
     Indication: PROSTATE CANCER
     Dosage: UNK UNK, QMO
     Route: 058
     Dates: start: 20070602
  5. FLUVAX [Concomitant]
     Dosage: UNK UNK, UNK
     Dates: start: 20080520, end: 20080520
  6. CALCIUM CARBONATE [Concomitant]
     Dosage: 1.25 G, QD
     Route: 048
     Dates: start: 20070702

REACTIONS (5)
  - OSTEONECROSIS OF JAW [None]
  - GINGIVAL INFECTION [None]
  - CHRONIC SINUSITIS [None]
  - GINGIVAL BLEEDING [None]
  - TOOTH FRACTURE [None]
